FAERS Safety Report 18776036 (Version 2)
Quarter: 2021Q1

REPORT INFORMATION
  Report Type: Report from Study
  Country: US (occurrence: US)
  Receive Date: 20210122
  Receipt Date: 20210303
  Transmission Date: 20210419
  Serious: Yes (Hospitalization)
  Sender: FDA-Public Use
  Company Number: US-JNJFOC-20210119645

PATIENT
  Age: 64 Year
  Sex: Female

DRUGS (21)
  1. SPRAVATO [Suspect]
     Active Substance: ESKETAMINE
     Indication: DEPRESSION
     Dates: start: 20201110
  2. SPRAVATO [Suspect]
     Active Substance: ESKETAMINE
     Indication: MAJOR DEPRESSION
     Dates: start: 20201112
  3. SPRAVATO [Suspect]
     Active Substance: ESKETAMINE
     Dates: start: 20201117
  4. SPRAVATO [Suspect]
     Active Substance: ESKETAMINE
     Dates: start: 20201203
  5. OMEPRAZOLE. [Concomitant]
     Active Substance: OMEPRAZOLE
     Indication: GASTROOESOPHAGEAL REFLUX DISEASE
  6. SPRAVATO [Suspect]
     Active Substance: ESKETAMINE
     Dates: start: 20201208
  7. SPRAVATO [Suspect]
     Active Substance: ESKETAMINE
     Dates: start: 20201217
  8. SPRAVATO [Suspect]
     Active Substance: ESKETAMINE
     Dates: start: 20201229
  9. SPRAVATO [Suspect]
     Active Substance: ESKETAMINE
     Dates: start: 20210105
  10. SPRAVATO [Suspect]
     Active Substance: ESKETAMINE
     Dates: start: 20201124
  11. SPRAVATO [Suspect]
     Active Substance: ESKETAMINE
     Dates: start: 20201119
  12. SPRAVATO [Suspect]
     Active Substance: ESKETAMINE
     Dates: start: 20201222
  13. SPRAVATO [Suspect]
     Active Substance: ESKETAMINE
     Dates: start: 20210114
  14. SPRAVATO [Suspect]
     Active Substance: ESKETAMINE
     Dates: start: 20201210
  15. SPRAVATO [Suspect]
     Active Substance: ESKETAMINE
     Dates: start: 20210107
  16. SPRAVATO [Suspect]
     Active Substance: ESKETAMINE
     Dates: start: 20210112
  17. PROZAC [Concomitant]
     Active Substance: FLUOXETINE HYDROCHLORIDE
     Indication: DEPRESSION
  18. ESTROGEN [Concomitant]
     Active Substance: ESTROGENS
     Indication: MENOPAUSE
  19. SPRAVATO [Suspect]
     Active Substance: ESKETAMINE
     Dates: start: 20201215
  20. VITAMIN D [ERGOCALCIFEROL] [Concomitant]
     Active Substance: ERGOCALCIFEROL
     Indication: SUPPLEMENTATION THERAPY
  21. SPRAVATO [Suspect]
     Active Substance: ESKETAMINE
     Dates: start: 20201201

REACTIONS (5)
  - Sedation [Recovered/Resolved]
  - Nausea [Recovered/Resolved]
  - Chest pain [Recovered/Resolved]
  - Tremor [Recovered/Resolved]
  - Dissociation [Recovered/Resolved]

NARRATIVE: CASE EVENT DATE: 20210107
